FAERS Safety Report 12608201 (Version 2)
Quarter: 2017Q3

REPORT INFORMATION
  Report Type: Report from Study
  Country: JP (occurrence: JP)
  Receive Date: 20160729
  Receipt Date: 20170804
  Transmission Date: 20171127
  Serious: Yes (Hospitalization, Other)
  Sender: FDA-Public Use
  Company Number: JP-BRISTOL-MYERS SQUIBB COMPANY-BMS-2016-059651

PATIENT
  Age: 73 Year
  Sex: Male
  Weight: 60.2 kg

DRUGS (2)
  1. NIVOLUMAB [Suspect]
     Active Substance: NIVOLUMAB
     Indication: NON-SMALL CELL LUNG CANCER
     Dosage: 174 MG, DOSAGE: 3MG/KG, LAST DOSE: 11JUL2016
     Route: 042
     Dates: start: 20160614, end: 20160711
  2. IPILIMUMAB [Suspect]
     Active Substance: IPILIMUMAB
     Indication: NON-SMALL CELL LUNG CANCER
     Dosage: 58 MG, 1MG/KG, LAST DOSE: 14JUN2016
     Route: 042
     Dates: start: 20160614, end: 20160711

REACTIONS (1)
  - Encephalitis autoimmune [Recovered/Resolved]

NARRATIVE: CASE EVENT DATE: 20160717
